FAERS Safety Report 14130690 (Version 9)
Quarter: 2018Q2

REPORT INFORMATION
  Report Type: Spontaneous
  Country: US (occurrence: US)
  Receive Date: 20171026
  Receipt Date: 20180622
  Transmission Date: 20180711
  Serious: Yes (Death, Hospitalization, Other)
  Sender: FDA-Public Use
  Company Number: US-ASTELLAS-2017US040949

PATIENT
  Age: 72 Year
  Sex: Male

DRUGS (2)
  1. XTANDI [Suspect]
     Active Substance: ENZALUTAMIDE
     Route: 048
  2. XTANDI [Suspect]
     Active Substance: ENZALUTAMIDE
     Indication: HORMONE-REFRACTORY PROSTATE CANCER
     Route: 048

REACTIONS (13)
  - Ear pain [Unknown]
  - Fall [Unknown]
  - Fluid overload [Unknown]
  - Death [Fatal]
  - Malaise [Unknown]
  - Gilbert^s syndrome [Unknown]
  - Blood potassium decreased [Unknown]
  - Dizziness [Unknown]
  - Blood magnesium decreased [Unknown]
  - Cortisol decreased [Unknown]
  - Malignant neoplasm progression [Unknown]
  - Fatigue [Unknown]
  - Dyspnoea [Unknown]

NARRATIVE: CASE EVENT DATE: 20180126
